FAERS Safety Report 10518886 (Version 4)
Quarter: 2014Q4

REPORT INFORMATION
  Report Type: Spontaneous
  Country: JP (occurrence: JP)
  Receive Date: 20141015
  Receipt Date: 20141216
  Transmission Date: 20150528
  Serious: Yes (Other)
  Sender: FDA-Public Use
  Company Number: PHHY2014JP134200

PATIENT
  Age: 78 Year
  Sex: Female

DRUGS (4)
  1. ZOMETA [Suspect]
     Active Substance: ZOLEDRONIC ACID
     Indication: BREAST CANCER METASTATIC
     Dosage: 4 MG, PER MONTH
     Route: 042
     Dates: start: 200506, end: 200801
  2. AROMASIN [Concomitant]
     Active Substance: EXEMESTANE
     Indication: BREAST CANCER METASTATIC
     Route: 048
  3. AROMASIN [Concomitant]
     Active Substance: EXEMESTANE
     Indication: METASTASES TO BONE
  4. ZOMETA [Suspect]
     Active Substance: ZOLEDRONIC ACID
     Indication: METASTASES TO BONE

REACTIONS (15)
  - Periodontitis [Unknown]
  - Gingivitis [Unknown]
  - Tenderness [Unknown]
  - Osteonecrosis of jaw [Recovered/Resolved]
  - Pain [Recovering/Resolving]
  - Gingival swelling [Unknown]
  - Fistula [Unknown]
  - Exposed bone in jaw [Recovering/Resolving]
  - Excessive granulation tissue [Recovered/Resolved]
  - Lymph node pain [Unknown]
  - Oral disorder [Unknown]
  - Purulent discharge [Unknown]
  - Paraesthesia [Unknown]
  - Gingival erythema [Unknown]
  - Impaired healing [Unknown]

NARRATIVE: CASE EVENT DATE: 200703
